FAERS Safety Report 23657307 (Version 1)
Quarter: 2024Q1

REPORT INFORMATION
  Report Type: Spontaneous
  Country: US (occurrence: US)
  Receive Date: 20240321
  Receipt Date: 20240321
  Transmission Date: 20240410
  Serious: No
  Sender: FDA-Public Use
  Company Number: US-TEVA-VS-3143129

PATIENT
  Age: 52 Year
  Sex: Female
  Weight: 89.8 kg

DRUGS (3)
  1. FLUVOXAMINE [Suspect]
     Active Substance: FLUVOXAMINE
     Indication: Depression
     Route: 065
  2. COMBIPATCH [Suspect]
     Active Substance: ESTRADIOL\NORETHINDRONE ACETATE
     Indication: Menopausal symptoms
     Dosage: DOSE 0.05/0.14 MILLIGRAM
     Route: 065
  3. MYRBETRIQ [Concomitant]
     Active Substance: MIRABEGRON
     Indication: Pollakiuria
     Route: 065

REACTIONS (3)
  - Vaginal haemorrhage [Unknown]
  - Breast tenderness [Unknown]
  - Off label use [Unknown]

NARRATIVE: CASE EVENT DATE: 20240102
